FAERS Safety Report 4762720-9 (Version None)
Quarter: 2005Q3

REPORT INFORMATION
  Report Type: 
  Country: None (occurrence: None)
  Receive Date: 20050907
  Receipt Date: 20050830
  Transmission Date: 20060218
  Serious: Yes (Life-Threatening, Hospitalization)
  Sender: FDA-Public Use
  Company Number: JP-ROCHE-416162

PATIENT
  Age: 69 Year
  Sex: Female
  Weight: 47 kg

DRUGS (6)
  1. PEGASYS [Suspect]
     Route: 058
     Dates: start: 20050126, end: 20050323
  2. PEG-INTRON [Suspect]
     Route: 058
     Dates: start: 20050330, end: 20050427
  3. REBETOL [Suspect]
     Route: 048
     Dates: start: 20050330, end: 20050420
  4. REBETOL [Suspect]
     Route: 048
     Dates: start: 20050420, end: 20050429
  5. URSODIOL [Concomitant]
     Indication: CHRONIC HEPATITIS
     Dosage: INDICATION ALSO MENTIONED AS CHOLELITHIASIS.
     Route: 048
  6. CONIEL [Concomitant]
     Indication: HYPERTENSION
     Route: 048

REACTIONS (7)
  - CEREBRAL HAEMORRHAGE [None]
  - CEREBRAL INFARCTION [None]
  - DISSEMINATED INTRAVASCULAR COAGULATION [None]
  - LOSS OF CONSCIOUSNESS [None]
  - PNEUMONIA [None]
  - RENAL FAILURE [None]
  - RESPIRATORY ARREST [None]
